FAERS Safety Report 5060744-8 (Version None)
Quarter: 2006Q3

REPORT INFORMATION
  Report Type: 
  Country: None (occurrence: None)
  Receive Date: 20060721
  Receipt Date: 20060721
  Transmission Date: 20061208
  Serious: Yes (Hospitalization)
  Sender: FDA-Public Use
  Company Number: None

PATIENT
  Sex: Male
  Weight: 89.8122 kg

DRUGS (14)
  1. MEGACE [Suspect]
     Indication: CHEMOTHERAPY
     Dosage: 20 ML DAILY BY MOUTH
     Route: 048
     Dates: start: 20060328, end: 20060620
  2. MEGACE [Suspect]
     Indication: WEIGHT DECREASED
     Dosage: 20 ML DAILY BY MOUTH
     Route: 048
     Dates: start: 20060328, end: 20060620
  3. IMURAN [Concomitant]
  4. PLAVIX [Concomitant]
  5. VITORIN [Concomitant]
  6. NPH INSULIN [Concomitant]
  7. ASPIRIN [Concomitant]
  8. SAL PALMETTO [Concomitant]
  9. GINKO BILOBA [Concomitant]
  10. CARBOPLATIN [Concomitant]
  11. TAXOTERE [Concomitant]
  12. ZOFRAN [Concomitant]
  13. TAGAMET [Concomitant]
  14. DECADRON PREMEDS [Concomitant]

REACTIONS (2)
  - DYSPNOEA [None]
  - SUPRAVENTRICULAR TACHYCARDIA [None]
